FAERS Safety Report 5488304-5 (Version None)
Quarter: 2007Q4

REPORT INFORMATION
  Report Type: 
  Country: None (occurrence: None)
  Receive Date: 20071017
  Receipt Date: 20071015
  Transmission Date: 20080405
  Serious: Yes (Hospitalization)
  Sender: FDA-Public Use
  Company Number: US-ASTRAZENECA-2007UW23791

PATIENT
  Age: 56 Year
  Sex: Female
  Weight: 105.7 kg

DRUGS (6)
  1. SEROQUEL [Suspect]
     Indication: INSOMNIA
     Route: 048
     Dates: start: 20070701
  2. TAMOXIFEN CITRATE [Concomitant]
  3. THYROID TAB [Concomitant]
  4. RESTORIL [Concomitant]
  5. VITAMIN D [Concomitant]
  6. PAXIL [Concomitant]

REACTIONS (4)
  - CHILLS [None]
  - CHOLECYSTITIS [None]
  - HYPERHIDROSIS [None]
  - SUICIDAL IDEATION [None]
